FAERS Safety Report 9450158 (Version 1)
Quarter: 2013Q3

REPORT INFORMATION
  Report Type: Spontaneous
  Country: US (occurrence: US)
  Receive Date: 20130809
  Receipt Date: 20130809
  Transmission Date: 20140515
  Serious: No
  Sender: FDA-Public Use
  Company Number: US-GLAXOSMITHKLINE-A1003560A

PATIENT
  Age: 58 Year
  Sex: Male

DRUGS (2)
  1. REQUIP XL [Suspect]
     Indication: PARKINSON^S DISEASE
     Dosage: 12MG PER DAY
     Route: 048
     Dates: start: 20121120
  2. NO CONCURRENT MEDICATION [Concomitant]

REACTIONS (9)
  - Mood altered [Unknown]
  - Somnolence [Unknown]
  - Muscle rigidity [Unknown]
  - Energy increased [Unknown]
  - Restless legs syndrome [Unknown]
  - Insomnia [Unknown]
  - Dizziness [Unknown]
  - Tremor [Not Recovered/Not Resolved]
  - Bradykinesia [Not Recovered/Not Resolved]
